FAERS Safety Report 6474303-3 (Version None)
Quarter: 2009Q4

REPORT INFORMATION
  Report Type: 
  Country: None (occurrence: None)
  Receive Date: 20091204
  Receipt Date: 20091201
  Transmission Date: 20100525
  Serious: Yes (Death, Hospitalization, Other)
  Sender: FDA-Public Use
  Company Number: PHEH2009US11020

PATIENT
  Sex: Female

DRUGS (2)
  1. EXJADE [Suspect]
     Indication: MYELODYSPLASTIC SYNDROME
     Dosage: 2000 MG, QD
     Route: 048
     Dates: start: 20060814, end: 20090826
  2. EXJADE [Suspect]
     Indication: IRON OVERLOAD

REACTIONS (2)
  - MULTI-ORGAN FAILURE [None]
  - PNEUMONIA [None]
